FAERS Safety Report 12665193 (Version 1)
Quarter: 2016Q3

REPORT INFORMATION
  Report Type: Spontaneous
  Country: FR (occurrence: FR)
  Receive Date: 20160818
  Receipt Date: 20160818
  Transmission Date: 20161109
  Serious: Yes (Hospitalization)
  Sender: FDA-Public Use
  Company Number: FR-GUERBET LLC-1056491

PATIENT
  Age: 86 Year
  Sex: Female

DRUGS (10)
  1. RHINOFLUIMUCIL [Concomitant]
     Active Substance: ACETYLCYSTEINE\BENZALKONIUM CHLORIDE\TUAMINOHEPTANE SULFATE
     Dates: start: 20160513
  2. KARDEGIC [Concomitant]
     Active Substance: ASPIRIN LYSINE
  3. HEXASPRAY [Concomitant]
     Active Substance: BICLOTYMOL
     Dates: start: 20160513
  4. LOSARTAN AND HYDROCHLOROTHIAZIDE [Concomitant]
     Active Substance: HYDROCHLOROTHIAZIDE\LOSARTAN POTASSIUM
  5. LERCANIDIPINE [Concomitant]
     Active Substance: LERCANIDIPINE
  6. OPTIRAY [Suspect]
     Active Substance: IOVERSOL
     Indication: COMPUTERISED TOMOGRAM
     Route: 013
     Dates: start: 20160701
  7. PYOSTACINE (PRISTINAMYCIN) [Suspect]
     Active Substance: PRISTINAMYCIN
     Route: 048
     Dates: start: 20160708
  8. AMOXICILLIN. [Concomitant]
     Active Substance: AMOXICILLIN
     Dates: start: 20160513
  9. BISOCE [Concomitant]
     Active Substance: BISOPROLOL
  10. POTASSIUM CHLORIDE. [Concomitant]
     Active Substance: POTASSIUM CHLORIDE

REACTIONS (2)
  - Dermatitis exfoliative [Recovered/Resolved]
  - Acute generalised exanthematous pustulosis [Recovered/Resolved]

NARRATIVE: CASE EVENT DATE: 20160705
